FAERS Safety Report 4594425-1 (Version None)
Quarter: 2005Q1

REPORT INFORMATION
  Report Type: 
  Country: None (occurrence: None)
  Receive Date: 20050301
  Receipt Date: 20040129
  Transmission Date: 20050727
  Serious: Yes (Hospitalization, Other)
  Sender: FDA-Public Use
  Company Number: US-GLAXOSMITHKLINE-A0495835A

PATIENT
  Age: 61 Year
  Sex: Male
  Weight: 90.4 kg

DRUGS (20)
  1. VALTREX [Suspect]
     Indication: HERPES ZOSTER
     Dosage: 500MG PER DAY
     Route: 048
     Dates: start: 20031108, end: 20031110
  2. AMITRIPTYLINE HCL [Concomitant]
     Dosage: 10MG PER DAY
     Route: 065
  3. ATORVASTATIN CALCIUM [Concomitant]
     Dosage: 10MG AT NIGHT
     Route: 065
  4. CHLORHEXIDINE [Concomitant]
     Dosage: 400ML TWICE PER DAY
     Route: 002
  5. BACTRIM [Concomitant]
     Dosage: 160MG PER DAY
     Route: 065
  6. HEMODIALYSIS [Concomitant]
     Route: 065
  7. ALDARA [Concomitant]
     Route: 061
  8. REGULAR INSULIN [Concomitant]
     Route: 065
  9. NPH INSULIN [Concomitant]
     Route: 065
  10. LEVOFLOXACIN [Concomitant]
     Route: 065
  11. NITROGLYCERIN [Concomitant]
     Dosage: .4MG AS REQUIRED
     Route: 058
  12. SEVELAMER [Concomitant]
     Dosage: 800MG TWICE PER DAY
     Route: 065
  13. NEPHROCAPS [Concomitant]
     Route: 065
  14. ASPIRIN [Concomitant]
     Dosage: 81MG PER DAY
     Route: 065
  15. CALCIUM CARBONATE [Concomitant]
     Dosage: 500MG FIVE TIMES PER DAY
     Route: 065
  16. CYCLOPHOSPHAMIDE [Concomitant]
     Dosage: 100MG PER DAY
     Route: 065
  17. EPOGEN [Concomitant]
     Dosage: 12500UNIT UNKNOWN
     Route: 065
  18. LANSOPRAZOLE [Concomitant]
     Dosage: 30MG TWICE PER DAY
     Route: 065
  19. METOPROLOL TARTRATE [Concomitant]
     Route: 065
  20. PREDNISONE [Concomitant]
     Dosage: 17.5MG PER DAY
     Route: 065

REACTIONS (4)
  - CONFUSIONAL STATE [None]
  - DISORIENTATION [None]
  - NAUSEA [None]
  - VOMITING [None]
